FAERS Safety Report 23950234 (Version 1)
Quarter: 2024Q2

REPORT INFORMATION
  Report Type: Spontaneous
  Country: IT (occurrence: IT)
  Receive Date: 20240607
  Receipt Date: 20240607
  Transmission Date: 20240716
  Serious: Yes (Other)
  Sender: FDA-Public Use
  Company Number: IT-MSNLABS-2024MSNLIT01244

PATIENT

DRUGS (4)
  1. DEFERASIROX [Suspect]
     Active Substance: DEFERASIROX
     Indication: Thalassaemia beta
     Route: 065
  2. MESALAMINE [Concomitant]
     Active Substance: MESALAMINE
     Indication: Product used for unknown indication
     Route: 065
  3. URSODIOL [Concomitant]
     Active Substance: URSODIOL
     Indication: Product used for unknown indication
     Route: 065
  4. PROPAFENONE [Concomitant]
     Active Substance: PROPAFENONE
     Indication: Product used for unknown indication
     Route: 065

REACTIONS (1)
  - Colitis [Recovered/Resolved]
